APPROVED DRUG PRODUCT: SANDOSTATIN
Active Ingredient: OCTREOTIDE ACETATE
Strength: EQ 0.1MG BASE/ML
Dosage Form/Route: INJECTABLE;INJECTION
Application: N019667 | Product #002 | TE Code: AP
Applicant: NOVARTIS PHARMACEUTICALS CORP
Approved: Oct 21, 1988 | RLD: Yes | RS: Yes | Type: RX